FAERS Safety Report 9119674 (Version 3)
Quarter: 2013Q2

REPORT INFORMATION
  Report Type: Report from Study
  Country: AU (occurrence: AU)
  Receive Date: 20130226
  Receipt Date: 20130415
  Transmission Date: 20140414
  Serious: Yes (Life-Threatening, Hospitalization, Disabling, Other)
  Sender: FDA-Public Use
  Company Number: AU-ASTRAZENECA-2013SE12513

PATIENT
  Age: 0 Day
  Sex: Female
  Weight: 4.1 kg

DRUGS (9)
  1. ELEVIT [Concomitant]
     Indication: VITAMIN SUPPLEMENTATION
     Dosage: 1 TABLET/DAY, INITIATED SINCE 1 TRIMESTER
     Route: 064
     Dates: end: 20120910
  2. VITAMIN D [Concomitant]
     Indication: VITAMIN SUPPLEMENTATION
     Dosage: 1 TABLET/DAY, INITIATED SINCE 1 TRIMESTER
     Route: 064
  3. NOVORAPID [Concomitant]
     Indication: GESTATIONAL DIABETES
     Dosage: 1 TABLET/DAY, INITIATED SINCE 1 TRIMESTER
     Route: 064
     Dates: end: 20121114
  4. PROTOPHANE [Concomitant]
     Indication: GESTATIONAL DIABETES
     Dosage: 1 TABLET/DAY, INITIATED SINCE 1 TRIMESTER
     Route: 064
     Dates: end: 20121114
  5. SEROQUEL XR [Suspect]
     Indication: PSYCHOTIC DISORDER
     Dosage: 50 MG/DAY INITIATED AT 34/40 WEEKS AND STOPPED AT DELIVERY
     Route: 064
  6. RISPERDAL CONSTA [Suspect]
     Indication: ANTIPSYCHOTIC DRUG LEVEL THERAPEUTIC
     Dosage: 37.5 MG, 2/52 FORTNIGHTLY INITIATED PRE-PREGNANCY AND ONGOING
     Route: 064
  7. ESCITALOPRAM [Suspect]
     Indication: ANTIDEPRESSANT THERAPY
     Dosage: 40 MG/DAY INITIATED PRE-PREGNANCY AND IS ONGOING
     Route: 064
  8. OXYNORM [Suspect]
     Indication: ANALGESIC THERAPY
     Dosage: 20-30 MG/DAY, FORTNIGHTLY, INITIATED AT 27/40 WEEKS STOPPED AT BIRTH
     Route: 064
     Dates: end: 20120910
  9. OXYCONTIN [Suspect]
     Indication: ANALGESIC THERAPY
     Dosage: 5-10 MG/DAY INITIATED AT 27/40 WEEKS STOPPED AT BIRTH
     Route: 064
     Dates: end: 20120910

REACTIONS (3)
  - Respiratory distress [Recovered/Resolved]
  - Drug withdrawal syndrome neonatal [Recovered/Resolved]
  - Premature baby [Recovered/Resolved]
